FAERS Safety Report 24602390 (Version 2)
Quarter: 2024Q4

REPORT INFORMATION
  Report Type: Report from Study
  Country: US (occurrence: US)
  Receive Date: 20241111
  Receipt Date: 20241115
  Transmission Date: 20250115
  Serious: Yes (Death)
  Sender: ROCHE
  Company Number: US-ROCHE-10000128684

PATIENT
  Age: 34 Year
  Sex: Male

DRUGS (5)
  1. TECENTRIQ [Suspect]
     Active Substance: ATEZOLIZUMAB
     Indication: Colorectal cancer metastatic
     Dosage: INFUSE 1200MG INTRAVENOUSLY ONCE EVERY 21 DAY(S)
     Route: 042
  2. TECENTRIQ [Suspect]
     Active Substance: ATEZOLIZUMAB
     Indication: Neoplasm malignant
  3. INJECTAFER [Concomitant]
     Active Substance: FERRIC CARBOXYMALTOSE
  4. MORPHINE [Concomitant]
     Active Substance: MORPHINE
  5. STIVARGA [Concomitant]
     Active Substance: REGORAFENIB MONOHYDRATE

REACTIONS (1)
  - Death [Fatal]

NARRATIVE: CASE EVENT DATE: 20241102
